FAERS Safety Report 25483937 (Version 2)
Quarter: 2025Q2

REPORT INFORMATION
  Report Type: Spontaneous
  Country: JP (occurrence: JP)
  Receive Date: 20250626
  Receipt Date: 20250630
  Transmission Date: 20250716
  Serious: Yes (Other)
  Sender: PFIZER
  Company Number: JP-PFIZER INC-202500126885

PATIENT

DRUGS (2)
  1. RHEUMATREX [Suspect]
     Active Substance: METHOTREXATE SODIUM
  2. ETANERCEPT [Concomitant]
     Active Substance: ETANERCEPT
     Dosage: 25 MG, EVERY 3 WEEKS

REACTIONS (5)
  - Complicated fracture [Unknown]
  - Lung neoplasm malignant [Unknown]
  - Epstein-Barr virus infection reactivation [Unknown]
  - Bone disorder [Unknown]
  - Epstein-Barr virus infection [Unknown]
